FAERS Safety Report 8362004-6 (Version None)
Quarter: 2012Q2

REPORT INFORMATION
  Report Type: 
  Country: None (occurrence: None)
  Receive Date: 20120515
  Receipt Date: 20120510
  Transmission Date: 20120825
  Serious: Yes (Hospitalization, Other)
  Sender: FDA-Public Use
  Company Number: BR-PFIZER INC-2012115386

PATIENT
  Age: 68 Year
  Sex: Male

DRUGS (9)
  1. CADUET [Suspect]
     Dosage: [AMLODIPINE BESILATE 5MG] / [ATORVASTATIN CALCIUM 20MG], 1X/DAY
     Route: 048
     Dates: start: 20020510, end: 20120415
  2. CITALOPRAM [Concomitant]
     Indication: RELAXATION THERAPY
     Dosage: UNK
  3. NORVASC [Concomitant]
     Dosage: UNK
  4. TEGRETOL [Concomitant]
     Dosage: UNK
  5. DIAMICRON [Concomitant]
     Indication: DIABETES MELLITUS
     Dosage: UNK
  6. GLUCOFORMIN [Concomitant]
     Indication: DIABETES MELLITUS
     Dosage: UNK
  7. RASILEZ [Concomitant]
     Indication: RENAL DISORDER
     Dosage: UNK
  8. DONAREN [Concomitant]
     Indication: SLEEP DISORDER
     Dosage: UNK
  9. JANUVIA [Concomitant]
     Indication: DIABETES MELLITUS
     Dosage: UNK

REACTIONS (1)
  - ANGIOPATHY [None]
